FAERS Safety Report 10072764 (Version 2)
Quarter: 2014Q2

REPORT INFORMATION
  Report Type: Spontaneous
  Country: US (occurrence: US)
  Receive Date: 20140411
  Receipt Date: 20140416
  Transmission Date: 20141212
  Serious: No
  Sender: FDA-Public Use
  Company Number: US-PFIZER INC-2014102231

PATIENT
  Age: 28 Year
  Sex: Female
  Weight: 126.98 kg

DRUGS (1)
  1. LYRICA [Suspect]
     Indication: RESTLESS LEGS SYNDROME
     Dosage: 75 MG, 2X/DAY
     Dates: start: 20140407

REACTIONS (1)
  - Hypoaesthesia oral [Unknown]
